FAERS Safety Report 7162645-8 (Version None)
Quarter: 2010Q4

REPORT INFORMATION
  Report Type: 
  Country: None (occurrence: None)
  Receive Date: 20101215
  Receipt Date: 20101005
  Transmission Date: 20110411
  Serious: Yes (Other)
  Sender: FDA-Public Use
  Company Number: US-AMGEN-KDL443928

PATIENT

DRUGS (2)
  1. PROCRIT [Suspect]
     Indication: ANAEMIA OF MALIGNANT DISEASE
     Dosage: 20000 IU, QWK
     Route: 058
     Dates: start: 20100101
  2. UNSPECIFIED MEDICATION [Concomitant]

REACTIONS (1)
  - HAEMATOCHEZIA [None]
